FAERS Safety Report 11159929 (Version 1)
Quarter: 2015Q2

REPORT INFORMATION
  Report Type: Spontaneous
  Country: ZA (occurrence: ZA)
  Receive Date: 20150603
  Receipt Date: 20150603
  Transmission Date: 20150821
  Serious: Yes (Other)
  Sender: FDA-Public Use
  Company Number: ZA-ABBVIE-15P-143-1403119-00

PATIENT
  Sex: Female

DRUGS (5)
  1. EPILIZINE [Suspect]
     Active Substance: VALPROATE SODIUM
     Indication: EPILEPSY
     Route: 065
     Dates: start: 20141118
  2. EPILIZINE [Suspect]
     Active Substance: VALPROATE SODIUM
     Route: 065
     Dates: start: 20150309
  3. EPILIZINE [Suspect]
     Active Substance: VALPROATE SODIUM
     Route: 065
     Dates: start: 20150125
  4. EPILIZINE [Suspect]
     Active Substance: VALPROATE SODIUM
     Route: 065
     Dates: start: 20150404
  5. EPILIZINE [Suspect]
     Active Substance: VALPROATE SODIUM
     Route: 065
     Dates: start: 20150515

REACTIONS (3)
  - Drug level decreased [Unknown]
  - Treatment noncompliance [Unknown]
  - Seizure [Unknown]
